FAERS Safety Report 7553685-5 (Version None)
Quarter: 2011Q2

REPORT INFORMATION
  Report Type: 
  Country: None (occurrence: None)
  Receive Date: 20110609
  Receipt Date: 20110527
  Transmission Date: 20111010
  Serious: Yes (Life-Threatening)
  Sender: FDA-Public Use
  Company Number: GER/GER/11/0018540

PATIENT
  Age: 48 Year
  Sex: Female
  Weight: 90 kg

DRUGS (2)
  1. IBUPROFEN [Suspect]
     Indication: PRODUCT USED FOR UNKNOWN INDICATION
     Dosage: ORAL
     Route: 048
     Dates: start: 20101101, end: 20101105
  2. AZITHROMYCIN [Suspect]
     Indication: EAR INFECTION
     Dosage: 1 DOSAGE FORMS, ORAL
     Route: 048
     Dates: start: 20101102, end: 20101104

REACTIONS (7)
  - BLOOD BILIRUBIN ABNORMAL [None]
  - ALANINE AMINOTRANSFERASE ABNORMAL [None]
  - CHROMATURIA [None]
  - NAUSEA [None]
  - APPETITE DISORDER [None]
  - HEPATOTOXICITY [None]
  - GAMMA-GLUTAMYLTRANSFERASE ABNORMAL [None]
